FAERS Safety Report 7150288-1 (Version None)
Quarter: 2010Q4

REPORT INFORMATION
  Report Type: 
  Country: None (occurrence: None)
  Receive Date: 20101123
  Receipt Date: 20101116
  Transmission Date: 20110411
  Serious: Yes (Hospitalization, Other)
  Sender: FDA-Public Use
  Company Number: 2009SP029587

PATIENT
  Age: 31 Year
  Sex: Female
  Weight: 102.0593 kg

DRUGS (11)
  1. NUVARING [Suspect]
     Indication: CONTRACEPTION
     Dates: start: 20070101, end: 20071001
  2. NUVARING [Suspect]
     Indication: MENSTRUAL CYCLE MANAGEMENT
     Dates: start: 20070101, end: 20071001
  3. SEASONIQUE [Suspect]
     Indication: CONTRACEPTION
  4. ZYRTEC [Concomitant]
  5. BENICAR HCT [Concomitant]
  6. LEXAPRO [Concomitant]
  7. FEOSOL [Concomitant]
  8. MULTI-VITAMINS [Concomitant]
  9. VITAMIN B-12 [Concomitant]
  10. LISINOPRIL [Concomitant]
  11. HYDROCHLOROTHIAZIDE [Concomitant]

REACTIONS (22)
  - ABORTION INCOMPLETE [None]
  - ABORTION SPONTANEOUS [None]
  - ANAEMIA [None]
  - CARDIAC VALVE DISEASE [None]
  - DEEP VEIN THROMBOSIS [None]
  - DRUG EXPOSURE BEFORE PREGNANCY [None]
  - ELECTROCARDIOGRAM ST SEGMENT ABNORMAL [None]
  - FALL [None]
  - FIBRIN D DIMER INCREASED [None]
  - FLUSHING [None]
  - HYPERLIPIDAEMIA [None]
  - INTRA-UTERINE DEATH [None]
  - LEFT VENTRICULAR HYPERTROPHY [None]
  - MIGRAINE [None]
  - MITRAL VALVE INCOMPETENCE [None]
  - PREGNANCY [None]
  - PULMONARY EMBOLISM [None]
  - SYNCOPE [None]
  - THROMBOSIS [None]
  - TRICUSPID VALVE INCOMPETENCE [None]
  - TROPONIN INCREASED [None]
  - VITAMIN B12 DEFICIENCY [None]
